FAERS Safety Report 20306477 (Version 1)
Quarter: 2022Q1

REPORT INFORMATION
  Report Type: Spontaneous
  Country: US (occurrence: None)
  Receive Date: 20220106
  Receipt Date: 20220106
  Transmission Date: 20220424
  Serious: Yes (Hospitalization)
  Sender: FDA-Public Use
  Company Number: None

PATIENT
  Age: 56 Year
  Sex: Male
  Weight: 108.8 kg

DRUGS (1)
  1. SOTROVIMAB [Suspect]
     Active Substance: SOTROVIMAB
     Indication: COVID-19 pneumonia
     Dosage: FREQUENCY : ONCE;?
     Route: 042
     Dates: start: 20220103, end: 20220103

REACTIONS (6)
  - Infusion related reaction [None]
  - Chills [None]
  - Tachycardia [None]
  - Body temperature increased [None]
  - Oxygen saturation decreased [None]
  - Tremor [None]

NARRATIVE: CASE EVENT DATE: 20220103
